FAERS Safety Report 9798203 (Version 2)
Quarter: 2014Q1

REPORT INFORMATION
  Report Type: Spontaneous
  Country: US (occurrence: US)
  Receive Date: 20140106
  Receipt Date: 20140331
  Transmission Date: 20141002
  Serious: Yes (Congenital Anomaly, Other)
  Sender: FDA-Public Use
  Company Number: US-PFIZER INC-2014000798

PATIENT
  Sex: Male

DRUGS (12)
  1. SERTRALINE HCL [Suspect]
     Indication: ANXIETY
     Dosage: UNK
     Route: 064
     Dates: start: 200808, end: 200910
  2. SERTRALINE HCL [Suspect]
     Indication: DEPRESSION
  3. SERTRALINE HCL [Suspect]
     Indication: AFFECTIVE DISORDER
  4. PRENATAL [Concomitant]
     Dosage: UNK
     Route: 064
  5. VALACYCLOVIR [Concomitant]
     Dosage: UNK
     Route: 064
  6. VALTREX [Concomitant]
     Dosage: UNK
     Route: 064
  7. AZITHROMYCIN [Concomitant]
     Dosage: UNK
     Route: 064
  8. METOCLOPRAMIDE [Concomitant]
     Dosage: UNK
     Route: 064
  9. PROMETHAZINE [Concomitant]
     Dosage: UNK
     Route: 064
  10. ALPRAZOLAM [Concomitant]
     Dosage: UNK
     Route: 064
  11. NAPROXEN [Concomitant]
     Dosage: UNK
     Route: 064
  12. JOLIVETTE [Concomitant]
     Dosage: UNK
     Route: 064

REACTIONS (2)
  - Maternal exposure during pregnancy [Unknown]
  - Cleft lip [Unknown]
